FAERS Safety Report 4802895-6 (Version None)
Quarter: 2005Q4

REPORT INFORMATION
  Report Type: 
  Country: None (occurrence: None)
  Receive Date: 20051019
  Receipt Date: 20051007
  Transmission Date: 20060501
  Serious: Yes (Hospitalization, Other)
  Sender: FDA-Public Use
  Company Number: KR-JNJFOC-20051000890

PATIENT
  Sex: Male
  Weight: 64.7 kg

DRUGS (11)
  1. BLINDED; INFLIXIMAB, RECOMBINANT [Suspect]
     Route: 042
  2. BLINDED; INFLIXIMAB, RECOMBINANT [Suspect]
     Indication: RHEUMATOID ARTHRITIS
     Route: 042
  3. PLACEBO [Suspect]
     Route: 042
  4. PLACEBO [Suspect]
     Indication: RHEUMATOID ARTHRITIS
     Route: 042
  5. TYROPA [Concomitant]
  6. PANTOPRAZOLE SODIUM [Concomitant]
     Indication: GASTROINTESTINAL DISORDER
     Route: 048
  7. ANASPAZ [Concomitant]
     Indication: GASTROINTESTINAL DISORDER
  8. METHOTREXATE [Concomitant]
     Indication: RHEUMATOID ARTHRITIS
     Route: 048
  9. FOLIN [Concomitant]
     Indication: RHEUMATOID ARTHRITIS
     Route: 048
  10. MUCOSTA [Concomitant]
     Indication: GASTROINTESTINAL DISORDER
  11. TYLENOL (CAPLET) [Concomitant]
     Indication: RHEUMATOID ARTHRITIS

REACTIONS (1)
  - GASTRIC CANCER [None]
